FAERS Safety Report 7949885-2 (Version None)
Quarter: 2011Q4

REPORT INFORMATION
  Report Type: 
  Country: None (occurrence: None)
  Receive Date: 20111130
  Receipt Date: 20111122
  Transmission Date: 20120403
  Serious: Yes (Other)
  Sender: FDA-Public Use
  Company Number: BR-PFIZER INC-2011286383

PATIENT
  Age: 69 Year
  Sex: Female
  Weight: 70 kg

DRUGS (3)
  1. AROMASIN [Suspect]
     Indication: BREAST CANCER
     Dosage: 25 MG, 1X/DAY
     Route: 048
  2. DIAMICRON [Concomitant]
     Indication: DIABETES MELLITUS
     Dosage: 30 (UNIT NOT PROVIDED), UNSPECIFIED FREQUENCY
  3. AROMASIN [Suspect]
     Indication: BONE NEOPLASM MALIGNANT

REACTIONS (6)
  - ABNORMAL BEHAVIOUR [None]
  - DYSPNOEA [None]
  - URTICARIA [None]
  - MOOD ALTERED [None]
  - SELF INJURIOUS BEHAVIOUR [None]
  - AGGRESSION [None]
